FAERS Safety Report 6923890-7 (Version None)
Quarter: 2010Q3

REPORT INFORMATION
  Report Type: 
  Country: None (occurrence: None)
  Receive Date: 20100813
  Receipt Date: 20100415
  Transmission Date: 20110219
  Serious: Yes (Other)
  Sender: FDA-Public Use
  Company Number: US-BRISTOL-MYERS SQUIBB COMPANY-15064264

PATIENT

DRUGS (3)
  1. REYATAZ [Suspect]
     Indication: HIV TEST POSITIVE
  2. NORVIR [Suspect]
     Indication: HIV TEST POSITIVE
  3. TRUVADA [Suspect]
     Indication: HIV TEST POSITIVE

REACTIONS (1)
  - PANCREATITIS [None]
